FAERS Safety Report 5084794-0 (Version None)
Quarter: 2006Q3

REPORT INFORMATION
  Report Type: 
  Country: None (occurrence: None)
  Receive Date: 20060815
  Receipt Date: 20060727
  Transmission Date: 20061208
  Serious: Yes (Hospitalization)
  Sender: FDA-Public Use
  Company Number: JP200608000003

PATIENT
  Age: 62 Year
  Sex: Female
  Weight: 29.6 kg

DRUGS (16)
  1. LISPRO(LISPRO 25LIS75NPL) PEN, DISPOSABLE [Suspect]
     Indication: DIABETES MELLITUS NON-INSULIN-DEPENDENT
     Dosage: SEE IMAGE
     Dates: start: 20051105, end: 20051106
  2. LISPRO(LISPRO 25LIS75NPL) PEN, DISPOSABLE [Suspect]
     Indication: DIABETES MELLITUS NON-INSULIN-DEPENDENT
     Dosage: SEE IMAGE
     Dates: start: 20051107, end: 20051129
  3. LISPRO(LISPRO 25LIS75NPL) PEN, DISPOSABLE [Suspect]
     Indication: DIABETES MELLITUS NON-INSULIN-DEPENDENT
     Dosage: SEE IMAGE
     Dates: start: 20051130, end: 20060101
  4. LISPRO(LISPRO 25LIS75NPL) PEN, DISPOSABLE [Suspect]
     Indication: DIABETES MELLITUS NON-INSULIN-DEPENDENT
     Dosage: SEE IMAGE
     Dates: start: 20051130, end: 20060101
  5. LISPRO(LISPRO 25LIS75NPL) PEN, DISPOSABLE [Suspect]
     Indication: DIABETES MELLITUS NON-INSULIN-DEPENDENT
     Dosage: SEE IMAGE
     Dates: start: 20060101, end: 20060215
  6. LISPRO(LISPRO 25LIS75NPL) PEN, DISPOSABLE [Suspect]
     Indication: DIABETES MELLITUS NON-INSULIN-DEPENDENT
     Dosage: SEE IMAGE
     Dates: start: 20060101, end: 20060215
  7. LISPRO(LISPRO 25LIS75NPL) PEN, DISPOSABLE [Suspect]
     Indication: DIABETES MELLITUS NON-INSULIN-DEPENDENT
     Dosage: SEE IMAGE
     Dates: start: 20060216, end: 20060221
  8. LISPRO(LISPRO 25LIS75NPL) PEN, DISPOSABLE [Suspect]
     Indication: DIABETES MELLITUS NON-INSULIN-DEPENDENT
     Dosage: SEE IMAGE
     Dates: start: 20060216, end: 20060221
  9. LISPRO(LISPRO 25LIS75NPL) PEN, DISPOSABLE [Suspect]
     Indication: DIABETES MELLITUS NON-INSULIN-DEPENDENT
     Dosage: SEE IMAGE
     Dates: start: 20060222
  10. LISPRO(LISPRO 25LIS75NPL) PEN, DISPOSABLE [Suspect]
     Indication: DIABETES MELLITUS NON-INSULIN-DEPENDENT
     Dosage: SEE IMAGE
     Dates: start: 20060222
  11. HUMALOG MIX [Concomitant]
  12. HUMALOG [Concomitant]
  13. RISPERDAL [Concomitant]
  14. SYMMETREL [Concomitant]
  15. LEVOTHYROXINE SODIUM [Concomitant]
  16. HIRTONIN (PROTIRELIN TARTRATE) [Concomitant]

REACTIONS (4)
  - HYPOGLYCAEMIA [None]
  - PYREXIA [None]
  - URINARY TRACT INFECTION [None]
  - WHEEZING [None]
